FAERS Safety Report 6991914-7 (Version None)
Quarter: 2010Q3

REPORT INFORMATION
  Report Type: 
  Country: None (occurrence: None)
  Receive Date: 20100915
  Receipt Date: 20100915
  Transmission Date: 20110219
  Serious: Yes (Hospitalization)
  Sender: FDA-Public Use
  Company Number: None

PATIENT
  Age: 80 Year
  Sex: Male
  Weight: 108 kg

DRUGS (2)
  1. FERAHEME [Suspect]
     Indication: ANAEMIA
     Dosage: 510 MG ONCE IV BOLUS, ONCE ONLY
     Route: 040
     Dates: start: 20100909, end: 20100909
  2. FERAHEME [Suspect]
     Indication: IRON DEFICIENCY
     Dosage: 510 MG ONCE IV BOLUS, ONCE ONLY
     Route: 040
     Dates: start: 20100909, end: 20100909

REACTIONS (2)
  - FEELING ABNORMAL [None]
  - HYPOTENSION [None]
